FAERS Safety Report 5213894-7 (Version None)
Quarter: 2007Q1

REPORT INFORMATION
  Report Type: 
  Country: None (occurrence: None)
  Receive Date: 20070117
  Receipt Date: 20061117
  Transmission Date: 20070707
  Serious: Yes (Death)
  Sender: FDA-Public Use
  Company Number: 3774

PATIENT
  Age: 65 Year

DRUGS (2)
  1. METFORMIN HCL [Suspect]
  2. ATENOLOL [Suspect]

REACTIONS (1)
  - SUICIDE ATTEMPT [None]
